FAERS Safety Report 20440961 (Version 2)
Quarter: 2022Q1

REPORT INFORMATION
  Report Type: Spontaneous
  Country: US (occurrence: US)
  Receive Date: 20220208
  Receipt Date: 20220215
  Transmission Date: 20220424
  Serious: No
  Sender: FDA-Public Use
  Company Number: US-GLAXOSMITHKLINE-US2022018648

PATIENT
  Age: 78 Year
  Sex: Female

DRUGS (1)
  1. ZEJULA [Suspect]
     Active Substance: NIRAPARIB
     Indication: Ovarian cancer
     Dosage: 200 MG, QD
     Route: 048
     Dates: start: 20220124

REACTIONS (8)
  - Insomnia [Not Recovered/Not Resolved]
  - Constipation [Unknown]
  - Stress [Unknown]
  - Feeling abnormal [Unknown]
  - Fluid intake reduced [Unknown]
  - Hypertension [Recovering/Resolving]
  - Dyspepsia [Unknown]
  - Anxiety [Unknown]

NARRATIVE: CASE EVENT DATE: 20220201
